FAERS Safety Report 5773356-5 (Version None)
Quarter: 2008Q2

REPORT INFORMATION
  Report Type: 
  Country: None (occurrence: None)
  Receive Date: 20080616
  Receipt Date: 20080602
  Transmission Date: 20081010
  Serious: Yes (Disabling, Other)
  Sender: FDA-Public Use
  Company Number: US-ELI_LILLY_AND_COMPANY-US200805000426

PATIENT
  Age: 34 Year
  Sex: Female

DRUGS (1)
  1. ZYPREXA [Suspect]
     Indication: MENTAL DISORDER
     Dosage: 10 MG, 3/D
     Dates: start: 19970101, end: 20010101

REACTIONS (16)
  - BEDRIDDEN [None]
  - CEREBROVASCULAR ACCIDENT [None]
  - CONVULSION [None]
  - DIABETES MELLITUS [None]
  - DRUG EXPOSURE DURING PREGNANCY [None]
  - DYSPNOEA [None]
  - GAIT DISTURBANCE [None]
  - HEART RATE INCREASED [None]
  - HEMIPARESIS [None]
  - IMPAIRED WORK ABILITY [None]
  - INFERTILITY [None]
  - MYOCARDIAL INFARCTION [None]
  - OVERDOSE [None]
  - PHOTOSENSITIVITY REACTION [None]
  - WEIGHT INCREASED [None]
  - WHITE BLOOD CELL COUNT ABNORMAL [None]
